FAERS Safety Report 16063098 (Version 3)
Quarter: 2019Q1

REPORT INFORMATION
  Report Type: Report from Study
  Country: BE (occurrence: BE)
  Receive Date: 20190312
  Receipt Date: 20190327
  Transmission Date: 20190418
  Serious: Yes (Hospitalization)
  Sender: FDA-Public Use
  Company Number: BE-MYLANLABS-2019M1021528

PATIENT
  Age: 65 Year
  Sex: Female
  Weight: 55 kg

DRUGS (15)
  1. BEVACIZUMAB. [Suspect]
     Active Substance: BEVACIZUMAB
     Dosage: 1 DOSAGE FORM, BIWEEKLY
     Route: 042
     Dates: start: 20180108, end: 20180423
  2. OXYNORM [Concomitant]
     Active Substance: OXYCODONE HYDROCHLORIDE
     Dosage: UNK
     Route: 065
     Dates: start: 20180108
  3. FENTANYL. [Concomitant]
     Active Substance: FENTANYL
     Dosage: UNK
     Route: 065
     Dates: start: 20171115
  4. FLUOROURACIL. [Suspect]
     Active Substance: FLUOROURACIL
     Indication: COLORECTAL CANCER METASTATIC
     Dosage: ON 23/JUL/2018 PATIENT RECEIVED MOST RECENT DOSE OF 5-FLUOROURACIL
     Route: 042
     Dates: start: 20160108, end: 20180423
  5. BEVACIZUMAB. [Suspect]
     Active Substance: BEVACIZUMAB
     Dosage: 1 DOSAGE FORM, BIWEEKLY
     Route: 042
     Dates: start: 20180625, end: 20180806
  6. LEUKOVORIN [Suspect]
     Active Substance: LEUCOVORIN SODIUM
     Indication: COLORECTAL CANCER METASTATIC
     Dosage: 1 DOSAGE FORM, BIWEEKLY
     Route: 042
     Dates: start: 20160108, end: 20180423
  7. LYRICA [Concomitant]
     Active Substance: PREGABALIN
     Dosage: UNK
     Route: 065
     Dates: start: 20180827
  8. IRINOTECAN [Suspect]
     Active Substance: IRINOTECAN
     Dosage: 1 DOSAGE FORM, BIWEEKLY
     Route: 042
     Dates: start: 20180625, end: 20180806
  9. BEVACIZUMAB. [Suspect]
     Active Substance: BEVACIZUMAB
     Indication: COLORECTAL CANCER METASTATIC
     Dosage: ON 23/JUL/2018 PATIENT RECEIVED MOST RECENT DOSE OF BEVACIZUMAB 275 FOR EVERY TWO WEEKS PRIOR TO AE
     Route: 042
     Dates: start: 20160912
  10. LYRICA [Concomitant]
     Active Substance: PREGABALIN
     Dosage: UNK
     Route: 065
     Dates: start: 20171115, end: 20180823
  11. FLUOROURACIL. [Suspect]
     Active Substance: FLUOROURACIL
     Dosage: 1 DOSAGE FORM, BIWEEKLY
     Route: 042
     Dates: start: 20180806
  12. IRINOTECAN [Suspect]
     Active Substance: IRINOTECAN
     Dosage: 1 DOSAGE FORM, BIWEEKLY
     Route: 042
     Dates: start: 20180806
  13. IRINOTECAN [Suspect]
     Active Substance: IRINOTECAN
     Indication: COLORECTAL CANCER METASTATIC
     Dosage: 1 DOSAGE FORM, BIWEEKLY
     Route: 042
     Dates: start: 20180108, end: 20180423
  14. LEUKOVORIN [Suspect]
     Active Substance: LEUCOVORIN SODIUM
     Dosage: 1 DOSAGE FORM, BIWEEKLY
     Route: 042
     Dates: start: 20180625, end: 20180806
  15. FLUOROURACIL. [Suspect]
     Active Substance: FLUOROURACIL
     Dosage: 1 DOSAGE FORM, BIWEEKLY
     Route: 042
     Dates: start: 20180625, end: 20180806

REACTIONS (14)
  - Abdominal pain [Recovered/Resolved]
  - Epistaxis [Not Recovered/Not Resolved]
  - Proteinuria [Not Recovered/Not Resolved]
  - Fatigue [Recovered/Resolved]
  - Diarrhoea [Recovered/Resolved]
  - Tooth infection [Recovering/Resolving]
  - Nasal crusting [Not Recovered/Not Resolved]
  - Vomiting [Recovered/Resolved]
  - Eye irritation [Recovered/Resolved]
  - Stomatitis [Not Recovered/Not Resolved]
  - Nausea [Not Recovered/Not Resolved]
  - Intestinal obstruction [Not Recovered/Not Resolved]
  - Skin laceration [Recovered/Resolved]
  - Dyspnoea [Not Recovered/Not Resolved]

NARRATIVE: CASE EVENT DATE: 20180108
